FAERS Safety Report 15471899 (Version 1)
Quarter: 2018Q4

REPORT INFORMATION
  Report Type: Spontaneous
  Country: SG (occurrence: SG)
  Receive Date: 20181008
  Receipt Date: 20181008
  Transmission Date: 20190205
  Serious: Yes (Other)
  Sender: FDA-Public Use
  Company Number: SG-SUN PHARMACEUTICAL INDUSTRIES LTD-2018R1-186350

PATIENT
  Sex: Male

DRUGS (2)
  1. NOVOMIX 30/70 [Suspect]
     Active Substance: INSULIN ASPART
     Indication: PRODUCT USED FOR UNKNOWN INDICATION
     Dosage: 2 CARTRIDGES OF NOVOMIX 30/70(600 UNITS)
     Route: 058
  2. AMLODIPINE [Suspect]
     Active Substance: AMLODIPINE BESYLATE
     Indication: PRODUCT USED FOR UNKNOWN INDICATION
     Dosage: UNK
     Route: 048

REACTIONS (5)
  - Suicide attempt [Recovering/Resolving]
  - Hypotension [Recovering/Resolving]
  - Hyperglycaemia [Recovering/Resolving]
  - Intentional overdose [Recovering/Resolving]
  - Hypoglycaemia [Recovering/Resolving]
